FAERS Safety Report 6259049-9 (Version None)
Quarter: 2009Q3

REPORT INFORMATION
  Report Type: 
  Country: None (occurrence: None)
  Receive Date: 20090707
  Receipt Date: 20090629
  Transmission Date: 20100115
  Serious: Yes (Hospitalization)
  Sender: FDA-Public Use
  Company Number: PHHY2009MX26471

PATIENT
  Age: 67 Year
  Sex: Male

DRUGS (2)
  1. STALEVO 100 [Suspect]
     Indication: PARKINSON'S DISEASE
     Dosage: 200/150/37.5 MG, 4 TABLET PER DAY
     Route: 048
     Dates: start: 20080601
  2. MIRAPEC [Concomitant]
     Indication: PARKINSON'S DISEASE

REACTIONS (1)
  - KNEE OPERATION [None]
